FAERS Safety Report 4476783-1 (Version None)
Quarter: 2004Q4

REPORT INFORMATION
  Report Type: 
  Country: None (occurrence: None)
  Receive Date: 20041013
  Receipt Date: 20041007
  Transmission Date: 20050328
  Serious: Yes (Life-Threatening)
  Sender: FDA-Public Use
  Company Number: 2004UW16765

PATIENT
  Age: 61 Year
  Sex: Female

DRUGS (5)
  1. NOLVADEX [Suspect]
     Indication: BREAST CANCER IN SITU
     Dosage: 20 MG DAILY PO
     Route: 048
     Dates: start: 20040712, end: 20040803
  2. LIPITOR [Concomitant]
  3. LEVOXYL [Concomitant]
  4. MAXIDEX [Concomitant]
  5. FOSAMAX [Concomitant]

REACTIONS (2)
  - DEPRESSION [None]
  - SUICIDAL IDEATION [None]
